FAERS Safety Report 14511634 (Version 1)
Quarter: 2018Q1

REPORT INFORMATION
  Report Type: Spontaneous
  Country: KR (occurrence: KR)
  Receive Date: 20180209
  Receipt Date: 20180209
  Transmission Date: 20180509
  Serious: Yes (Other)
  Sender: FDA-Public Use
  Company Number: KR-ASTRAZENECA-2018SE11117

PATIENT
  Age: 82 Year
  Sex: Female

DRUGS (1)
  1. TAGRISSO [Suspect]
     Active Substance: OSIMERTINIB
     Indication: GENE MUTATION
     Route: 048
     Dates: start: 201711, end: 20180117

REACTIONS (4)
  - Pneumonitis [Unknown]
  - Pulmonary embolism [Unknown]
  - Pleural effusion [Unknown]
  - Lung infiltration [Unknown]

NARRATIVE: CASE EVENT DATE: 20180117
